FAERS Safety Report 9379567 (Version 1)
Quarter: 2013Q2

REPORT INFORMATION
  Report Type: Spontaneous
  Country: SG (occurrence: None)
  Receive Date: 20130627
  Receipt Date: 20130627
  Transmission Date: 20140414
  Serious: Yes (Other)
  Sender: FDA-Public Use
  Company Number: FK201302153

PATIENT
  Sex: 0

DRUGS (1)
  1. MAGNESIUM SULFATE [Suspect]
     Indication: HYPOXIC-ISCHAEMIC ENCEPHALOPATHY
     Dosage: LOADING DOSE,
     Route: 042

REACTIONS (2)
  - Off label use [None]
  - Hypotension [None]
